FAERS Safety Report 6989560-4 (Version None)
Quarter: 2010Q3

REPORT INFORMATION
  Report Type: 
  Country: None (occurrence: None)
  Receive Date: 20100916
  Receipt Date: 20100126
  Transmission Date: 20110219
  Serious: Yes (Other)
  Sender: FDA-Public Use
  Company Number: FR-PFIZER INC-2009275933

PATIENT
  Age: 53 Year
  Sex: Male

DRUGS (1)
  1. LYRICA [Suspect]
     Indication: NEURALGIA
     Dosage: UNK
     Route: 048
     Dates: start: 20090801

REACTIONS (4)
  - HYPOCAPNIA [None]
  - HYPOXIA [None]
  - NOCTURNAL DYSPNOEA [None]
  - OBSTRUCTIVE AIRWAYS DISORDER [None]
